FAERS Safety Report 5651461-1 (Version None)
Quarter: 2008Q1

REPORT INFORMATION
  Report Type: 
  Country: None (occurrence: None)
  Receive Date: 20080305
  Receipt Date: 20080221
  Transmission Date: 20080703
  Serious: Yes (Other)
  Sender: FDA-Public Use
  Company Number: JP-ELI_LILLY_AND_COMPANY-JP200803000040

PATIENT
  Age: 80 Year
  Sex: Male

DRUGS (8)
  1. HUMALOG MIX 50/50 [Suspect]
     Route: 058
     Dates: start: 20080213, end: 20080215
  2. HUMALOG [Concomitant]
     Dates: end: 20080212
  3. HUMALOG [Concomitant]
     Dosage: 20 IU, 3/D
     Dates: start: 20080216
  4. HUMACART N [Concomitant]
     Dates: end: 20080212
  5. HUMACART N [Concomitant]
     Dosage: 4 IU, DAILY (1/D)
     Dates: start: 20080216
  6. ACTOS [Concomitant]
     Dates: start: 20070406
  7. MEDET [Concomitant]
     Dates: start: 20060502
  8. MUCOSTA [Concomitant]

REACTIONS (1)
  - HEPATIC FUNCTION ABNORMAL [None]
